FAERS Safety Report 4512791-X (Version None)
Quarter: 2004Q4

REPORT INFORMATION
  Report Type: 
  Country: None (occurrence: None)
  Receive Date: 20041119
  Receipt Date: 20041119
  Transmission Date: 20050328
  Serious: Yes (Death)
  Sender: FDA-Public Use
  Company Number: None

PATIENT
  Age: 29 Year
  Sex: Male
  Weight: 69.5 kg

DRUGS (2)
  1. RISPERIDONE [Suspect]
     Indication: PSYCHOTIC DISORDER
     Dosage: UP TO 3 MG/D  ONCE A DAY ORAL
     Route: 048
     Dates: start: 20020909, end: 20021210
  2. RISPOLEPT [Suspect]
     Indication: PSYCHOTIC DISORDER
     Dosage: UP TO 4MG/D  ONCE A DAY ORAL
     Route: 048
     Dates: start: 20030120, end: 20030510

REACTIONS (3)
  - DIABETES MELLITUS INSULIN-DEPENDENT [None]
  - KETOACIDOSIS [None]
  - TREATMENT NONCOMPLIANCE [None]
